FAERS Safety Report 17153232 (Version 2)
Quarter: 2020Q2

REPORT INFORMATION
  Report Type: Report from Study
  Country: US (occurrence: US)
  Receive Date: 20191213
  Receipt Date: 20200416
  Transmission Date: 20200713
  Serious: Yes (Other)
  Sender: FDA-Public Use
  Company Number: US-INCYTE CORPORATION-2019IN012406

PATIENT

DRUGS (1)
  1. JAKAFI [Suspect]
     Active Substance: RUXOLITINIB
     Indication: MYELOFIBROSIS
     Dosage: 10 MILLIGRAM, BID
     Route: 048

REACTIONS (6)
  - Blindness [Not Recovered/Not Resolved]
  - Haematochezia [Unknown]
  - Blood pressure fluctuation [Unknown]
  - Epistaxis [Unknown]
  - Red blood cell count decreased [Unknown]
  - Alopecia [Not Recovered/Not Resolved]
